FAERS Safety Report 8031012-7 (Version None)
Quarter: 2012Q1

REPORT INFORMATION
  Report Type: 
  Country: None (occurrence: None)
  Receive Date: 20120109
  Receipt Date: 20120105
  Transmission Date: 20120608
  Serious: Yes (Other)
  Sender: FDA-Public Use
  Company Number: PHHY2012JP001058

PATIENT
  Age: 64 Year
  Sex: Male

DRUGS (3)
  1. TEKTURNA [Suspect]
     Indication: HYPERTENSION
     Dosage: 150 MG, UNK
     Route: 048
     Dates: start: 20101101, end: 20111227
  2. MICARDIS [Suspect]
     Dosage: 40 MG, UNK
     Route: 048
     Dates: end: 20111227
  3. AMLODIPINE [Concomitant]
     Dosage: 3.25 MG, UNK
     Route: 048
     Dates: start: 20111227

REACTIONS (1)
  - RENAL DISORDER [None]
